FAERS Safety Report 6439037-X (Version None)
Quarter: 2009Q4

REPORT INFORMATION
  Report Type: 
  Country: None (occurrence: None)
  Receive Date: 20091113
  Receipt Date: 20091109
  Transmission Date: 20100525
  Serious: No
  Sender: FDA-Public Use
  Company Number: PR-ALEXION-A200900917

PATIENT

DRUGS (8)
  1. SOLIRIS [Suspect]
     Indication: PAROXYSMAL NOCTURNAL HAEMOGLOBINURIA
     Dosage: 600 MG, Q WEEK
     Route: 042
     Dates: start: 20090831, end: 20090921
  2. SOLIRIS [Suspect]
     Dosage: 900 MG, UNK
     Route: 042
     Dates: start: 20091012
  3. XANAX [Concomitant]
     Indication: DEPRESSION
     Dosage: 0.5 MG, PRN
     Route: 048
  4. WELLBUTRIN [Concomitant]
     Indication: DEPRESSION
     Dosage: UNK
     Route: 048
  5. PREDNISONE [Concomitant]
     Indication: PAROXYSMAL NOCTURNAL HAEMOGLOBINURIA
     Dosage: UNK
     Route: 048
  6. FOLIC ACID [Concomitant]
     Indication: PAROXYSMAL NOCTURNAL HAEMOGLOBINURIA
     Dosage: UNK
     Route: 048
  7. TYLENOL (CAPLET) [Concomitant]
     Indication: ARTHRITIS
     Dosage: UNK
     Route: 048
  8. ATENOLOL [Suspect]
     Dosage: 25 MG, UNK
     Route: 048

REACTIONS (1)
  - UNEVALUABLE EVENT [None]
